FAERS Safety Report 17193096 (Version 2)
Quarter: 2019Q4

REPORT INFORMATION
  Report Type: Report from Study
  Country: US (occurrence: US)
  Receive Date: 20191223
  Receipt Date: 20191231
  Transmission Date: 20200122
  Serious: Yes (Other)
  Sender: FDA-Public Use
  Company Number: US-UCBSA-2019053643

PATIENT
  Age: 32 Year
  Sex: Female

DRUGS (1)
  1. CERTOLIZUMAB PEGOL [Suspect]
     Active Substance: CERTOLIZUMAB PEGOL
     Indication: RHEUMATOID ARTHRITIS
     Dosage: 400 MILLIGRAM, EV 2 WEEKS(QOW)
     Dates: start: 20191210

REACTIONS (8)
  - Injection site rash [Not Recovered/Not Resolved]
  - Oropharyngeal pain [Recovered/Resolved]
  - Ocular hyperaemia [Recovered/Resolved]
  - Diarrhoea [Not Recovered/Not Resolved]
  - Pain [Recovered/Resolved]
  - Rash [Recovered/Resolved]
  - Rheumatoid arthritis [Not Recovered/Not Resolved]
  - Pyrexia [Recovered/Resolved]

NARRATIVE: CASE EVENT DATE: 201912
